FAERS Safety Report 8890067 (Version 1)
Quarter: 2012Q4

REPORT INFORMATION
  Report Type: 
  Country: US (occurrence: US)
  Receive Date: 20121107
  Receipt Date: 20121107
  Transmission Date: 20130627
  Serious: Yes (Hospitalization, Other)
  Sender: FDA-Public Use
  Company Number: US-BRISTOL-MYERS SQUIBB COMPANY-17080920

PATIENT
  Age: 62 Year
  Sex: Female
  Weight: 58 kg

DRUGS (21)
  1. ABATACEPT SUBQ INJECTION 125MG/ML [Suspect]
     Indication: RHEUMATOID ARTHRITIS
     Route: 058
  2. METHOTREXATE [Suspect]
  3. ACYCLOVIR [Concomitant]
  4. ASPIRIN [Concomitant]
  5. ATORVASTATIN [Concomitant]
  6. ZYRTEC [Concomitant]
  7. CYMBALTA [Concomitant]
  8. FLONASE [Concomitant]
  9. GABAPENTIN [Concomitant]
  10. LEUCOVORIN [Concomitant]
  11. LIPITOR [Concomitant]
  12. METHOCARBAMOL [Concomitant]
  13. MIRALAX [Concomitant]
  14. PRILOSEC [Concomitant]
  15. RESTASIS [Concomitant]
  16. TRAZODONE HCL [Concomitant]
  17. TRICOR [Concomitant]
  18. ALEVE [Concomitant]
  19. FOLIC ACID [Concomitant]
  20. CHOLECALCIFEROL [Concomitant]
  21. PYRIDOXINE [Concomitant]

REACTIONS (5)
  - Large intestine perforation [Unknown]
  - Gastrointestinal infection [Not Recovered/Not Resolved]
  - Herpes zoster [Unknown]
  - Pancreatitis acute [Unknown]
  - Rheumatoid arthritis [Unknown]
